FAERS Safety Report 23753148 (Version 1)
Quarter: 2024Q2

REPORT INFORMATION
  Report Type: Spontaneous
  Country: US (occurrence: None)
  Receive Date: 20240417
  Receipt Date: 20240417
  Transmission Date: 20240716
  Serious: Yes (Hospitalization)
  Sender: FDA-Public Use
  Company Number: None

PATIENT
  Sex: Female

DRUGS (1)
  1. STELARA [Suspect]
     Active Substance: USTEKINUMAB
     Indication: Crohn^s disease
     Dosage: 90MG EVERY 4 WEEKS SUBCUTANEOUSL?
     Dates: start: 202312

REACTIONS (4)
  - Gastric infection [None]
  - Condition aggravated [None]
  - Crohn^s disease [None]
  - Superior mesenteric artery syndrome [None]
